FAERS Safety Report 24609065 (Version 1)
Quarter: 2024Q4

REPORT INFORMATION
  Report Type: Spontaneous
  Country: BE (occurrence: BE)
  Receive Date: 20241112
  Receipt Date: 20241112
  Transmission Date: 20250115
  Serious: Yes (Other)
  Sender: PFIZER
  Company Number: BE-ASTELLAS-2024-AER-015592

PATIENT
  Sex: Male
  Weight: 80 kg

DRUGS (3)
  1. TALZENNA [Interacting]
     Active Substance: TALAZOPARIB TOSYLATE
     Indication: Hormone-refractory prostate cancer
     Dosage: 0.25 MG (1 UNIT)
     Route: 048
     Dates: start: 20240812, end: 20240924
  2. XTANDI [Interacting]
     Active Substance: ENZALUTAMIDE
     Indication: Hormone-refractory prostate cancer
     Dosage: 160 MG, 1X/DAY (1 UNIT)
     Route: 048
     Dates: start: 20240705, end: 20240924
  3. XTANDI [Interacting]
     Active Substance: ENZALUTAMIDE
     Dosage: 160 MG, 1X/DAY
     Route: 048
     Dates: start: 20241008

REACTIONS (3)
  - Pancytopenia [Recovered/Resolved]
  - Fatigue [Recovering/Resolving]
  - Drug interaction [Unknown]

NARRATIVE: CASE EVENT DATE: 20240924
